FAERS Safety Report 19380754 (Version 1)
Quarter: 2021Q2

REPORT INFORMATION
  Report Type: Spontaneous
  Country: SE (occurrence: SE)
  Receive Date: 20210607
  Receipt Date: 20210607
  Transmission Date: 20210717
  Serious: Yes (Hospitalization)
  Sender: FDA-Public Use
  Company Number: SE-009507513-2105SWE007391

PATIENT
  Age: 33 Year
  Sex: Male

DRUGS (13)
  1. ACETYLCYSTEINE. [Concomitant]
     Active Substance: ACETYLCYSTEINE
  2. BISOLVON [Concomitant]
     Active Substance: BROMHEXINE HYDROCHLORIDE
  3. MENADION MEDIC [Concomitant]
  4. SINGULAIR [Concomitant]
     Active Substance: MONTELUKAST SODIUM
  5. PULMOZYME [Concomitant]
     Active Substance: DORNASE ALFA
  6. COLOBREATHE [Concomitant]
     Active Substance: COLISTIMETHATE SODIUM
     Dosage: DOSE 2 (UNIT UNSPECIFIED), QD
     Dates: start: 20201015
  7. CITALOPRAM [Concomitant]
     Active Substance: CITALOPRAM HYDROBROMIDE
  8. AERIUS (DESLORATADINE) [Concomitant]
     Active Substance: DESLORATADINE
     Dosage: 20 MILLIGRAM, QD
  9. BETAPRED [Concomitant]
     Active Substance: BETAMETHASONE SODIUM PHOSPHATE
     Dosage: DOSE 4 (UNIT UNSPECIFIED), QD
     Dates: start: 20201015, end: 20201025
  10. CREON [Concomitant]
     Active Substance: PANCRELIPASE AMYLASE\PANCRELIPASE LIPASE\PANCRELIPASE PROTEASE
  11. MOVICOL [Concomitant]
     Active Substance: POLYETHYLENE GLYCOL 3350\POTASSIUM CHLORIDE\SODIUM BICARBONATE\SODIUM CHLORIDE
  12. ZERBAXA [Suspect]
     Active Substance: CEFTOLOZANE SULFATE\TAZOBACTAM SODIUM
     Indication: INFECTIVE PULMONARY EXACERBATION OF CYSTIC FIBROSIS
     Dosage: 6 GRAM, QD (ALSO REPORTED 163 MG/ML)
     Route: 042
     Dates: start: 20201015
  13. DIVISUN [Concomitant]
     Active Substance: CHOLECALCIFEROL

REACTIONS (3)
  - Vision blurred [Recovered/Resolved]
  - Facial paresis [Recovering/Resolving]
  - Hypoaesthesia [Recovered/Resolved]

NARRATIVE: CASE EVENT DATE: 20201026
